FAERS Safety Report 5342509-2 (Version None)
Quarter: 2007Q2

REPORT INFORMATION
  Report Type: 
  Country: None (occurrence: None)
  Receive Date: 20070601
  Receipt Date: 20070521
  Transmission Date: 20071010
  Serious: Yes (Hospitalization)
  Sender: FDA-Public Use
  Company Number: VE-PFIZER INC-2007024974

PATIENT
  Sex: Female
  Weight: 73.5 kg

DRUGS (8)
  1. SU-011,248 [Suspect]
     Indication: RENAL CELL CARCINOMA STAGE UNSPECIFIED
     Route: 048
     Dates: start: 20061115, end: 20061213
  2. SU-011,248 [Suspect]
     Route: 048
     Dates: start: 20061227, end: 20070123
  3. SU-011,248 [Suspect]
     Route: 048
     Dates: start: 20070214, end: 20070307
  4. SU-011,248 [Suspect]
     Route: 048
     Dates: start: 20070323, end: 20070323
  5. ALL OTHER THERAPEUTIC PRODUCTS [Concomitant]
     Route: 048
     Dates: start: 20040701
  6. DIAMICRON [Concomitant]
     Route: 048
  7. TRIMEBUTINE [Concomitant]
     Route: 048
  8. FLUOCARIL [Concomitant]
     Route: 048

REACTIONS (8)
  - CHILLS [None]
  - COORDINATION ABNORMAL [None]
  - DYSPHASIA [None]
  - HYPERBILIRUBINAEMIA [None]
  - HYPOTHYROIDISM [None]
  - SEPSIS [None]
  - THROMBOCYTOPENIA [None]
  - VOMITING [None]
